FAERS Safety Report 21646406 (Version 1)
Quarter: 2022Q4

REPORT INFORMATION
  Report Type: Spontaneous
  Country: FR (occurrence: FR)
  Receive Date: 20221126
  Receipt Date: 20221126
  Transmission Date: 20230112
  Serious: Yes (Hospitalization)
  Sender: FDA-Public Use
  Company Number: None

PATIENT
  Age: 83 Year
  Sex: Female

DRUGS (11)
  1. FUROSEMIDE [Suspect]
     Active Substance: FUROSEMIDE
     Indication: Hypertension
  2. CIPROFLOXACIN [Suspect]
     Active Substance: CIPROFLOXACIN
     Indication: Urinary tract disorder
     Dates: start: 20220527, end: 20220529
  3. CELEBREX [Suspect]
     Active Substance: CELECOXIB
     Indication: Back pain
     Dates: start: 20220525, end: 20220529
  4. ARAVA [Concomitant]
     Active Substance: LEFLUNOMIDE
  5. AMITRIPTYLINE HYDROCHLORIDE [Concomitant]
     Active Substance: AMITRIPTYLINE HYDROCHLORIDE
  6. PREDNISONE [Concomitant]
     Active Substance: PREDNISONE
  7. PREGABALIN [Concomitant]
     Active Substance: PREGABALIN
  8. DULOXETINE [Concomitant]
     Active Substance: DULOXETINE
  9. ZOPICLONE [Concomitant]
     Active Substance: ZOPICLONE
  10. BISOPROLOL [Concomitant]
     Active Substance: BISOPROLOL
  11. PANTOPRAZOLE [Concomitant]
     Active Substance: PANTOPRAZOLE

REACTIONS (1)
  - Acute kidney injury [Recovering/Resolving]

NARRATIVE: CASE EVENT DATE: 20220531
